FAERS Safety Report 12761366 (Version 2)
Quarter: 2016Q4

REPORT INFORMATION
  Report Type: Report from Study
  Country: JP (occurrence: JP)
  Receive Date: 20160920
  Receipt Date: 20161004
  Transmission Date: 20170207
  Serious: Yes (Congenital Anomaly)
  Sender: FDA-Public Use
  Company Number: JP-ALXN-A201606893AA

PATIENT
  Age: 3 Year
  Sex: Female

DRUGS (1)
  1. STRENSIQ [Suspect]
     Active Substance: ASFOTASE ALFA
     Indication: HYPOPHOSPHATASIA
     Dosage: 2 MG/KG, TIW
     Route: 058
     Dates: start: 20150928

REACTIONS (2)
  - Tooth discolouration [Not Recovered/Not Resolved]
  - Tooth disorder [Not Recovered/Not Resolved]
